FAERS Safety Report 6971504-2 (Version None)
Quarter: 2010Q3

REPORT INFORMATION
  Report Type: 
  Country: None (occurrence: None)
  Receive Date: 20100908
  Receipt Date: 20100830
  Transmission Date: 20110219
  Serious: Yes (Other)
  Sender: FDA-Public Use
  Company Number: US-PFIZER INC-2010098014

PATIENT
  Sex: Male
  Weight: 92.063 kg

DRUGS (4)
  1. CHANTIX [Suspect]
     Indication: SMOKING CESSATION THERAPY
     Dosage: 0.5 MG, 1X/DAY
     Route: 048
     Dates: start: 20090901, end: 20090901
  2. CHANTIX [Suspect]
     Dosage: 0.5 MG, 2X/DAY
     Route: 048
     Dates: start: 20090901, end: 20090901
  3. CHANTIX [Suspect]
     Dosage: 1 MG, 2X/DAY
     Route: 048
     Dates: start: 20090901, end: 20091008
  4. DEPAKOTE [Concomitant]
     Dosage: 500 MG, 2X/DAY
     Dates: start: 20091013

REACTIONS (7)
  - AFFECTIVE DISORDER [None]
  - AGGRESSION [None]
  - AGITATION [None]
  - DEPRESSED MOOD [None]
  - NAUSEA [None]
  - SINUS CONGESTION [None]
  - VIOLENCE-RELATED SYMPTOM [None]
